FAERS Safety Report 15930437 (Version 2)
Quarter: 2019Q1

REPORT INFORMATION
  Report Type: Spontaneous
  Country: US (occurrence: US)
  Receive Date: 20190207
  Receipt Date: 20190322
  Transmission Date: 20190417
  Serious: No
  Sender: FDA-Public Use
  Company Number: US-BIOGEN-2019BI00693608

PATIENT
  Sex: Female

DRUGS (1)
  1. PLEGRIDY [Suspect]
     Active Substance: PEGINTERFERON BETA-1A
     Indication: MULTIPLE SCLEROSIS
     Route: 050
     Dates: start: 20180117

REACTIONS (11)
  - Fatigue [Unknown]
  - Influenza like illness [Unknown]
  - Dizziness [Unknown]
  - Decreased interest [Unknown]
  - Depression [Unknown]
  - Flatulence [Unknown]
  - Injection site reaction [Unknown]
  - Injection site erythema [Unknown]
  - Vaginal infection [Unknown]
  - Labyrinthitis [Unknown]
  - Hypoaesthesia [Unknown]
